FAERS Safety Report 8133935-7 (Version None)
Quarter: 2012Q1

REPORT INFORMATION
  Report Type: 
  Country: None (occurrence: None)
  Receive Date: 20120213
  Receipt Date: 20120206
  Transmission Date: 20120608
  Serious: Yes (Other)
  Sender: FDA-Public Use
  Company Number: CA-ASTRAZENECA-2012SE07271

PATIENT
  Age: 9 Year
  Sex: Male

DRUGS (2)
  1. SYMBICORT [Suspect]
     Indication: NASOPHARYNGITIS
     Dosage: 1 PUFF, TWO TIMES A DAY
     Route: 055
     Dates: start: 20120127, end: 20120129
  2. SYMBICORT [Suspect]
     Indication: WHEEZING
     Dosage: 1 PUFF, TWO TIMES A DAY
     Route: 055
     Dates: start: 20120127, end: 20120129

REACTIONS (5)
  - ABDOMINAL PAIN UPPER [None]
  - SUICIDAL IDEATION [None]
  - EXCESSIVE SEXUAL FANTASIES [None]
  - CIRCUMSTANCE OR INFORMATION CAPABLE OF LEADING TO MEDICATION ERROR [None]
  - HALLUCINATION, VISUAL [None]
